FAERS Safety Report 21947376 (Version 2)
Quarter: 2023Q1

REPORT INFORMATION
  Report Type: Spontaneous
  Country: JP (occurrence: JP)
  Receive Date: 20230202
  Receipt Date: 20230321
  Transmission Date: 20230418
  Serious: Yes (Hospitalization, Other)
  Sender: FDA-Public Use
  Company Number: JP-002147023-NVSJ2022JP098606

PATIENT
  Sex: Female

DRUGS (2)
  1. ENTRESTO [Suspect]
     Active Substance: SACUBITRIL\VALSARTAN
     Indication: Hypertension
     Dosage: 200 MG
     Route: 048
     Dates: start: 202207, end: 20220823
  2. ENTRESTO [Suspect]
     Active Substance: SACUBITRIL\VALSARTAN
     Dosage: 200 MG
     Route: 048
     Dates: start: 202209, end: 20220922

REACTIONS (10)
  - Angioedema [Recovered/Resolved]
  - Pruritus [Unknown]
  - Peripheral swelling [Unknown]
  - Oedema peripheral [Recovering/Resolving]
  - Cellulitis [Recovering/Resolving]
  - Eosinophil count increased [Unknown]
  - Rash [Recovering/Resolving]
  - Product administration error [Unknown]
  - Fall [Recovering/Resolving]
  - Soft tissue injury [Recovering/Resolving]

NARRATIVE: CASE EVENT DATE: 20220101
